FAERS Safety Report 7263948-9 (Version None)
Quarter: 2011Q1

REPORT INFORMATION
  Report Type: 
  Country: None (occurrence: None)
  Receive Date: 20110130
  Receipt Date: 20101101
  Transmission Date: 20110831
  Serious: No
  Sender: FDA-Public Use
  Company Number: US-ABBOTT-10P-163-0682646-00

PATIENT
  Sex: Female
  Weight: 69.462 kg

DRUGS (8)
  1. HUMIRA [Suspect]
     Indication: CROHN'S DISEASE
     Route: 058
     Dates: end: 20101029
  2. COLESTIPOL HYDROCHLORIDE [Concomitant]
     Indication: DIARRHOEA
     Dosage: TWO TABLETS 2X DAY AS NEEDED
     Route: 048
  3. DICLOFENAC [Concomitant]
     Indication: PRODUCT USED FOR UNKNOWN INDICATION
     Route: 048
  4. PREMARIN [Concomitant]
     Indication: HOT FLUSH
     Route: 048
  5. DIAZEPAM [Concomitant]
     Indication: PRODUCT USED FOR UNKNOWN INDICATION
     Dosage: 3 TABLETS AT BEDTIME
     Route: 048
  6. LEVETIRACETAM [Concomitant]
     Indication: HEADACHE
     Route: 048
  7. NEXIUM [Concomitant]
     Indication: ULCER
     Route: 048
  8. FUROSEMIDE [Concomitant]
     Indication: PRODUCT USED FOR UNKNOWN INDICATION
     Route: 048

REACTIONS (5)
  - INFLAMMATION [None]
  - DECREASED APPETITE [None]
  - WEIGHT DECREASED [None]
  - PAIN [None]
  - GASTRITIS [None]
